FAERS Safety Report 19830087 (Version 1)
Quarter: 2021Q3

REPORT INFORMATION
  Report Type: Spontaneous
  Country: US (occurrence: US)
  Receive Date: 20210914
  Receipt Date: 20210914
  Transmission Date: 20211014
  Serious: No
  Sender: FDA-Public Use
  Company Number: US-SA-2021SA300659

PATIENT
  Sex: Female

DRUGS (1)
  1. LANTUS SOLOSTAR [Suspect]
     Active Substance: INSULIN GLARGINE
     Indication: DIABETES MELLITUS
     Dosage: 70 IU, QD (DAILY BUT SEPARATES IT INTO TWO INJECTIONS OF 35 UNITS EACH)
     Route: 065

REACTIONS (2)
  - Injection site pain [Unknown]
  - Intentional product misuse [Unknown]
